FAERS Safety Report 25154365 (Version 1)
Quarter: 2025Q2

REPORT INFORMATION
  Report Type: Report from Study
  Country: CA (occurrence: CA)
  Receive Date: 20250403
  Receipt Date: 20250403
  Transmission Date: 20250716
  Serious: Yes (Hospitalization)
  Sender: SANDOZ
  Company Number: CA-002147023-NVSC2022CA125880

PATIENT
  Sex: Male

DRUGS (4)
  1. ERELZI [Suspect]
     Active Substance: ETANERCEPT-SZZS
     Indication: Rheumatoid arthritis
     Dosage: 50 MG, QW
     Route: 058
     Dates: start: 20220506
  2. ERELZI [Suspect]
     Active Substance: ETANERCEPT-SZZS
     Route: 058
  3. ERELZI [Suspect]
     Active Substance: ETANERCEPT-SZZS
     Route: 065
     Dates: start: 20240309
  4. ENBREL [Concomitant]
     Active Substance: ETANERCEPT
     Indication: Product used for unknown indication
     Route: 065

REACTIONS (6)
  - Mental disorder [Unknown]
  - General physical health deterioration [Not Recovered/Not Resolved]
  - Herpes zoster [Unknown]
  - Pain in extremity [Unknown]
  - Arthralgia [Unknown]
  - Arthritis [Unknown]
